FAERS Safety Report 6456232-4 (Version None)
Quarter: 2009Q4

REPORT INFORMATION
  Report Type: 
  Country: None (occurrence: None)
  Receive Date: 20091125
  Receipt Date: 20091116
  Transmission Date: 20100525
  Serious: Yes (Other)
  Sender: FDA-Public Use
  Company Number: US-JNJCH-2009029107

PATIENT
  Age: 66 Year
  Sex: Female
  Weight: 61.7 kg

DRUGS (3)
  1. BENADRYL [Suspect]
     Indication: HYPERSENSITIVITY
     Dosage: TEXT:ONE TABLET AS NECCESSARY
     Route: 048
  2. CENTRUM [Concomitant]
     Indication: VITAMIN SUPPLEMENTATION
     Dosage: TEXT:UNSPECIFIED ONE A DAY
     Route: 048
  3. NEXIUM [Concomitant]
     Indication: GASTROOESOPHAGEAL REFLUX DISEASE
     Route: 065

REACTIONS (5)
  - BLOOD GLUCOSE INCREASED [None]
  - EAR DISCOMFORT [None]
  - SENSATION OF PRESSURE [None]
  - SOMNOLENCE [None]
  - VISION BLURRED [None]
